FAERS Safety Report 18170690 (Version 5)
Quarter: 2021Q3

REPORT INFORMATION
  Report Type: Spontaneous
  Country: US (occurrence: US)
  Receive Date: 20200819
  Receipt Date: 20210723
  Transmission Date: 20211014
  Serious: Yes (Other)
  Sender: FDA-Public Use
  Company Number: US-PFIZER INC-2020302752

PATIENT
  Age: 33 Year
  Sex: Female

DRUGS (5)
  1. LYRICA [Suspect]
     Active Substance: PREGABALIN
     Indication: PAIN
     Dosage: 300 MG, DAILY; [75MG BID (TWICE DAILY) AND 150MG HS (AT BEDTIME)]
     Route: 048
  2. LYRICA [Suspect]
     Active Substance: PREGABALIN
     Indication: NEURALGIA
     Dosage: 150 MG, 3X/DAY,1 PO 3 X DAILY FOR NERVE PAIN
     Route: 048
  3. CYMBALTA [Concomitant]
     Active Substance: DULOXETINE HYDROCHLORIDE
     Dosage: UNK
  4. LYRICA [Suspect]
     Active Substance: PREGABALIN
     Indication: CENTRAL PAIN SYNDROME
     Dosage: 75 MG, THREE TIMES A DAY (2 AROUND 6:10PM AND 1 BEFORE GOING TO BED AT 7:30 OR 8:00PM)
     Route: 048
  5. LYRICA [Suspect]
     Active Substance: PREGABALIN
     Dosage: 75 MG, 2X/DAY,1 PO 2 X DAILY FOR NERVE RELATED PAIN
     Route: 048

REACTIONS (15)
  - Gait disturbance [Unknown]
  - Hypotension [Unknown]
  - Fatigue [Unknown]
  - Odynophagia [Unknown]
  - Hypokinesia [Unknown]
  - Fear [Unknown]
  - Bruxism [Unknown]
  - Nervous system disorder [Unknown]
  - Blood glucose decreased [Unknown]
  - Haematochezia [Unknown]
  - Abdominal discomfort [Unknown]
  - Dyspepsia [Unknown]
  - Therapeutic response shortened [Unknown]
  - Hallucination [Unknown]
  - Tongue injury [Unknown]
